FAERS Safety Report 11261620 (Version 2)
Quarter: 2015Q3

REPORT INFORMATION
  Report Type: Report from Study
  Country: DE (occurrence: DE)
  Receive Date: 20150710
  Receipt Date: 20150730
  Transmission Date: 20151125
  Serious: Yes (Hospitalization)
  Sender: FDA-Public Use
  Company Number: DE-INCYTE CORPORATION-2015IN003206

PATIENT
  Age: 57 Year
  Sex: Male
  Weight: 75.1 kg

DRUGS (6)
  1. ASPIRIN. [Concomitant]
     Active Substance: ASPIRIN
     Indication: PRURITUS
     Dosage: 100 MG, QD
     Route: 065
     Dates: start: 2001, end: 20150417
  2. ASPIRIN. [Concomitant]
     Active Substance: ASPIRIN
     Dosage: 100 MG, QD
     Route: 065
     Dates: start: 20150402, end: 20150417
  3. INCB018424 [Suspect]
     Active Substance: RUXOLITINIB
     Indication: MYELOFIBROSIS
     Dosage: 2 DF, QD (5 MG)
     Route: 048
     Dates: start: 20150318
  4. ASPIRIN. [Concomitant]
     Active Substance: ASPIRIN
     Indication: MASTOCYTOSIS
     Dosage: 200 MG, QD
     Route: 065
     Dates: start: 2001, end: 20150401
  5. CETIRIZINE [Concomitant]
     Active Substance: CETIRIZINE HYDROCHLORIDE
     Indication: PRURITUS
     Dosage: 10 MG, QD
     Route: 065
     Dates: start: 2001
  6. CETIRIZINE [Concomitant]
     Active Substance: CETIRIZINE HYDROCHLORIDE
     Indication: MASTOCYTOSIS

REACTIONS (4)
  - Subdural haematoma [Recovered/Resolved]
  - Facial bones fracture [Recovered/Resolved]
  - Accident [Unknown]
  - Fall [Unknown]

NARRATIVE: CASE EVENT DATE: 20150617
